FAERS Safety Report 5562379-7 (Version None)
Quarter: 2007Q4

REPORT INFORMATION
  Report Type: 
  Country: None (occurrence: None)
  Receive Date: 20071215
  Receipt Date: 20070821
  Transmission Date: 20080405
  Serious: No
  Sender: FDA-Public Use
  Company Number: US-AMGEN-US239785

PATIENT
  Sex: Male

DRUGS (3)
  1. ENBREL [Suspect]
     Indication: RHEUMATOID ARTHRITIS
     Route: 065
     Dates: start: 20050801
  2. METHOTREXATE [Concomitant]
     Route: 065
  3. SULFASALAZINE [Concomitant]
     Route: 065

REACTIONS (1)
  - INJECTION SITE IRRITATION [None]
